FAERS Safety Report 21503841 (Version 1)
Quarter: 2022Q4

REPORT INFORMATION
  Report Type: Spontaneous
  Country: US (occurrence: None)
  Receive Date: 20221025
  Receipt Date: 20221025
  Transmission Date: 20230112
  Serious: Yes (Hospitalization)
  Sender: FDA-Public Use
  Company Number: None

PATIENT
  Sex: Male
  Weight: 35.8 kg

DRUGS (6)
  1. CYTARABINE [Suspect]
     Active Substance: CYTARABINE
     Dates: end: 20220902
  2. DAUNORUBICIN [Suspect]
     Active Substance: DAUNORUBICIN
     Dates: end: 20220923
  3. METHOTREXATE [Suspect]
     Active Substance: METHOTREXATE
     Dates: end: 20220930
  4. ONCASPAR [Suspect]
     Active Substance: PEGASPARGASE
     Dates: end: 20220905
  5. PREDNISOLONE [Suspect]
     Active Substance: PREDNISOLONE
     Dates: end: 20220929
  6. VINCRISTINE SULFATE [Suspect]
     Active Substance: VINCRISTINE SULFATE
     Dates: end: 20220923

REACTIONS (3)
  - Abscess limb [None]
  - Staphylococcus test positive [None]
  - Soft tissue infection [None]

NARRATIVE: CASE EVENT DATE: 20221002
